FAERS Safety Report 7638604-5 (Version None)
Quarter: 2011Q3

REPORT INFORMATION
  Report Type: 
  Country: None (occurrence: None)
  Receive Date: 20110720
  Receipt Date: 20110712
  Transmission Date: 20111222
  Serious: Yes (Other)
  Sender: FDA-Public Use
  Company Number: 2011SP029378

PATIENT
  Age: 34 Year
  Sex: Female
  Weight: 65 kg

DRUGS (2)
  1. IMPLANON [Suspect]
     Indication: CONTRACEPTION
     Dosage: 1 DF
     Dates: start: 20080101, end: 20100801
  2. SPEED [Concomitant]

REACTIONS (8)
  - PREGNANCY WITH IMPLANT CONTRACEPTIVE [None]
  - BLIGHTED OVUM [None]
  - DEVICE DISLOCATION [None]
  - ABORTION SPONTANEOUS INCOMPLETE [None]
  - DEVICE DEPLOYMENT ISSUE [None]
  - BREAST TENDERNESS [None]
  - MATERNAL EXPOSURE DURING PREGNANCY [None]
  - MUSCLE STRAIN [None]
